FAERS Safety Report 19912463 (Version 3)
Quarter: 2021Q4

REPORT INFORMATION
  Report Type: Report from Study
  Country: US (occurrence: US)
  Receive Date: 20211004
  Receipt Date: 20211224
  Transmission Date: 20220303
  Serious: No
  Sender: FDA-Public Use
  Company Number: NVSC2021US223390

PATIENT
  Age: 70 Year
  Sex: Male

DRUGS (1)
  1. KESIMPTA [Suspect]
     Active Substance: OFATUMUMAB
     Indication: Relapsing multiple sclerosis
     Dosage: 20 MG, QMO
     Route: 058
     Dates: start: 20210922

REACTIONS (3)
  - Hypersomnia [Not Recovered/Not Resolved]
  - Fall [Recovering/Resolving]
  - Post-traumatic pain [Recovering/Resolving]

NARRATIVE: CASE EVENT DATE: 20210928
